FAERS Safety Report 24269053 (Version 1)
Quarter: 2024Q3

REPORT INFORMATION
  Report Type: Spontaneous
  Country: US (occurrence: US)
  Receive Date: 20240830
  Receipt Date: 20240830
  Transmission Date: 20241017
  Serious: No
  Sender: ROCHE
  Company Number: US-ROCHE-10000064835

PATIENT
  Age: 53 Year
  Sex: Female
  Weight: 74.4 kg

DRUGS (19)
  1. ACTEMRA ACTPEN [Suspect]
     Active Substance: TOCILIZUMAB
     Indication: Product used for unknown indication
     Route: 058
  2. TREPROSTINIL [Suspect]
     Active Substance: TREPROSTINIL
     Indication: Pulmonary arterial hypertension
     Route: 050
     Dates: start: 20230420
  3. TREPROSTINIL [Suspect]
     Active Substance: TREPROSTINIL
     Route: 050
     Dates: start: 20230420
  4. VITAMIN B12 [Concomitant]
     Active Substance: CYANOCOBALAMIN
  5. POTASSIUM CHLORIDE [Concomitant]
     Active Substance: POTASSIUM CHLORIDE
  6. VENLAFAXINE HYDROCHLORIDE [Concomitant]
     Active Substance: VENLAFAXINE HYDROCHLORIDE
  7. EZETIMIBE [Concomitant]
     Active Substance: EZETIMIBE
  8. SULFASALAZINE [Concomitant]
     Active Substance: SULFASALAZINE
  9. PROTONIX [Concomitant]
     Active Substance: PANTOPRAZOLE SODIUM
  10. METOPROLOL SUCCINATE [Concomitant]
     Active Substance: METOPROLOL SUCCINATE
  11. CALCIUM [Concomitant]
     Active Substance: CALCIUM
  12. OXYGEN [Concomitant]
     Active Substance: OXYGEN
  13. LETAIRIS [Concomitant]
     Active Substance: AMBRISENTAN
  14. FARXIGA [Concomitant]
     Active Substance: DAPAGLIFLOZIN PROPANEDIOL
  15. INVOKANA [Concomitant]
     Active Substance: CANAGLIFLOZIN
  16. CELECOXIB [Concomitant]
     Active Substance: CELECOXIB
  17. GABAPENTIN [Concomitant]
     Active Substance: GABAPENTIN
  18. ZOFRAN [Concomitant]
     Active Substance: ONDANSETRON HYDROCHLORIDE
  19. CYCLOBENZAPRINE [Concomitant]
     Active Substance: CYCLOBENZAPRINE

REACTIONS (3)
  - Scratch [Unknown]
  - Contusion [Unknown]
  - Arthropod bite [Unknown]
